FAERS Safety Report 24729362 (Version 2)
Quarter: 2025Q1

REPORT INFORMATION
  Report Type: Spontaneous
  Country: US (occurrence: US)
  Receive Date: 20241213
  Receipt Date: 20250106
  Transmission Date: 20250409
  Serious: No
  Sender: GLAXOSMITHKLINE
  Company Number: US-GSK-US2024152695

PATIENT
  Sex: Female
  Weight: 80.74 kg

DRUGS (1)
  1. BENLYSTA [Suspect]
     Active Substance: BELIMUMAB
     Indication: Product used for unknown indication
     Dates: start: 20201020, end: 20241210

REACTIONS (2)
  - Off label use [Unknown]
  - Discontinued product administered [Unknown]
